FAERS Safety Report 16843780 (Version 2)
Quarter: 2020Q1

REPORT INFORMATION
  Report Type: Spontaneous
  Country: GB (occurrence: GB)
  Receive Date: 20190924
  Receipt Date: 20200116
  Transmission Date: 20200409
  Serious: Yes (Other)
  Sender: FDA-Public Use
  Company Number: GB-CPL-001247

PATIENT
  Age: 85 Year
  Sex: Male

DRUGS (1)
  1. DONEPEZIL. [Suspect]
     Active Substance: DONEPEZIL
     Indication: DEMENTIA
     Dosage: 5MG NIGHT
     Route: 065
     Dates: start: 201811

REACTIONS (5)
  - Anxiety [Unknown]
  - Agitation [Unknown]
  - Delusion [Unknown]
  - Confusional state [Unknown]
  - Aggression [Unknown]
